FAERS Safety Report 19459457 (Version 4)
Quarter: 2021Q3

REPORT INFORMATION
  Report Type: Report from Study
  Country: SE (occurrence: SE)
  Receive Date: 20210624
  Receipt Date: 20210813
  Transmission Date: 20211014
  Serious: Yes (Other)
  Sender: FDA-Public Use
  Company Number: SE-CELGENEUS-SWE-20210604749

PATIENT
  Age: 73 Year
  Sex: Male
  Weight: 74.5 kg

DRUGS (24)
  1. CC?4047 [Suspect]
     Active Substance: POMALIDOMIDE
     Indication: PLASMA CELL MYELOMA
     Dosage: 4 MILLIGRAM
     Route: 048
     Dates: start: 20170102, end: 20170116
  2. CILAXORAL [Concomitant]
     Active Substance: SODIUM PICOSULFATE
     Indication: CONSTIPATION
     Dosage: 7.5 MILLIGRAM
     Route: 048
     Dates: start: 20170323
  3. ZOPIKLON [Concomitant]
     Active Substance: ZOPICLONE
     Indication: INSOMNIA
     Dosage: 2 MILLIGRAM
     Route: 048
     Dates: start: 20170626
  4. APIXABAN [Concomitant]
     Active Substance: APIXABAN
     Indication: PULMONARY EMBOLISM
     Dosage: 2.5 MILLIGRAM
     Route: 048
     Dates: start: 20210122
  5. ENALAPRIL [Concomitant]
     Active Substance: ENALAPRIL
     Indication: HYPERTENSION
     Dosage: 20 MILLIGRAM
     Route: 048
     Dates: start: 20210211
  6. OMEPRASOL [Concomitant]
     Indication: GASTRITIS
     Dosage: 20 MILLIGRAM
     Route: 048
     Dates: start: 20170102
  7. ACIKLOVIR [Concomitant]
     Indication: HERPES ZOSTER
     Dosage: 200 MILLIGRAM
     Route: 048
     Dates: start: 20180409
  8. DEXAMETHASONE. [Suspect]
     Active Substance: DEXAMETHASONE
     Indication: PLASMA CELL MYELOMA
     Dosage: 20 MILLIGRAM
     Route: 048
     Dates: start: 20170102, end: 20170113
  9. LACTULOSE. [Concomitant]
     Active Substance: LACTULOSE
     Indication: CONSTIPATION
     Dosage: 10 MILLIGRAM
     Route: 048
     Dates: start: 20170213
  10. MAGNESIUM HYDROXIDE. [Concomitant]
     Active Substance: MAGNESIUM HYDROXIDE
     Indication: MUSCLE SPASMS
     Dosage: 250?500 MILLIGRAM
     Route: 048
     Dates: start: 20180801
  11. HYDROCORTISONE. [Concomitant]
     Active Substance: HYDROCORTISONE
     Indication: DRY EYE
     Dosage: 1 APPLICATION
     Route: 061
     Dates: start: 20190604
  12. PARACETAMOL [Concomitant]
     Active Substance: ACETAMINOPHEN
     Indication: ARTHRALGIA
     Dosage: 1 GRAM
     Route: 048
     Dates: start: 20201027
  13. CC?4047 [Suspect]
     Active Substance: POMALIDOMIDE
     Dosage: 2 MILLIGRAM
     Route: 048
     Dates: start: 20210615
  14. VALERIANA OFFICINALIS [Concomitant]
     Active Substance: VALERIAN
     Indication: INSOMNIA
     Route: 048
     Dates: start: 20170725
  15. HYDROCORTISONE. [Concomitant]
     Active Substance: HYDROCORTISONE
     Indication: DRY EYE
     Dosage: 1 APPLICATION
     Route: 047
     Dates: start: 20180711
  16. DEXAMETHASONE. [Suspect]
     Active Substance: DEXAMETHASONE
     Dosage: 12 MILLIGRAM
     Route: 048
     Dates: start: 20210615
  17. PARACETAMOL [Concomitant]
     Active Substance: ACETAMINOPHEN
     Indication: ARTHRITIS
  18. BORTEZOMIB. [Suspect]
     Active Substance: BORTEZOMIB
     Indication: PLASMA CELL MYELOMA
     Dosage: 1.3 MILLIGRAM/SQ. METER
     Route: 058
     Dates: start: 20170102, end: 20170112
  19. KOLEKALCIFEROL [Concomitant]
     Indication: HYPOCALCAEMIA
     Dosage: 500/400 MILLIGRAM/IE
     Route: 048
     Dates: start: 20140602
  20. ISOPTO?MAXIDEX [Concomitant]
     Dosage: 3 DROPS
     Route: 047
     Dates: start: 20210326
  21. BORTEZOMIB. [Suspect]
     Active Substance: BORTEZOMIB
     Dosage: 0.7  MILLIGRAM/SQ. METER
     Route: 058
     Dates: start: 20210615
  22. CLOPIDOGREL [Concomitant]
     Active Substance: CLOPIDOGREL BISULFATE
     Indication: ANGIOCARDIOGRAM
     Dosage: 75 MILLIGRAM
     Route: 048
     Dates: start: 20210122
  23. ISOPTO?MAXIDEX [Concomitant]
     Indication: CATARACT OPERATION
     Dosage: 3 DROPS
     Route: 047
     Dates: start: 20201114, end: 20201214
  24. ATORVASTATIN [Concomitant]
     Active Substance: ATORVASTATIN
     Indication: MYOCARDIAL INFARCTION
     Dosage: 80 MILLIGRAM
     Route: 048
     Dates: start: 20210525

REACTIONS (1)
  - Basal cell carcinoma [Not Recovered/Not Resolved]

NARRATIVE: CASE EVENT DATE: 20210604
